FAERS Safety Report 5472086-7 (Version None)
Quarter: 2007Q3

REPORT INFORMATION
  Report Type: 
  Country: None (occurrence: None)
  Receive Date: 20070928
  Receipt Date: 20070919
  Transmission Date: 20080115
  Serious: Yes (Other)
  Sender: FDA-Public Use
  Company Number: FR-PFIZER INC-2007079402

PATIENT
  Sex: Male

DRUGS (12)
  1. TAHOR [Suspect]
     Indication: DYSLIPIDAEMIA
     Route: 048
  2. PREVISCAN [Suspect]
     Indication: THROMBOSIS PROPHYLAXIS
     Route: 048
     Dates: start: 20061016, end: 20061020
  3. KARDEGIC [Suspect]
     Route: 048
  4. ROCEPHIN [Suspect]
     Indication: BRONCHITIS
     Dosage: DAILY DOSE:1GRAM-TEXT:1G/10ML-FREQ:DAILY
     Route: 042
     Dates: start: 20061017, end: 20061020
  5. COLCHIMAX [Suspect]
     Indication: CRYSTAL ARTHROPATHY
     Dosage: TEXT:1 DOSE FORM-FREQ:DAILY
     Route: 048
     Dates: start: 20061018, end: 20061020
  6. ALDACTONE [Concomitant]
  7. LASIX [Concomitant]
  8. PNEUMOREL [Concomitant]
  9. BRONCHODUAL [Concomitant]
     Dosage: TEXT:50UG/20UG
     Route: 055
  10. TRIATEC [Concomitant]
  11. CARDENSIEL [Concomitant]
  12. EZETROL [Concomitant]

REACTIONS (1)
  - HAEMATURIA [None]
